FAERS Safety Report 4296171-0 (Version None)
Quarter: 2004Q1

REPORT INFORMATION
  Report Type: 
  Country: None (occurrence: None)
  Receive Date: 20040217
  Receipt Date: 20030908
  Transmission Date: 20041129
  Serious: No
  Sender: FDA-Public Use
  Company Number: US-GLAXOSMITHKLINE-A0425047A

PATIENT
  Age: 27 Year
  Sex: Female

DRUGS (5)
  1. LAMICTAL [Suspect]
     Indication: BIPOLAR DISORDER
     Route: 048
  2. SEROQUEL [Concomitant]
  3. DEPAKOTE [Concomitant]
  4. ANTIDEPRESSANT [Concomitant]
  5. KLONOPIN [Concomitant]

REACTIONS (4)
  - DRUG INEFFECTIVE [None]
  - HEPATIC ENZYME INCREASED [None]
  - RASH [None]
  - WEIGHT INCREASED [None]
